FAERS Safety Report 7573918 (Version 3)
Quarter: 2013Q1

REPORT INFORMATION
  Report Type: Spontaneous
  Country: US (occurrence: US)
  Receive Date: 20100907
  Receipt Date: 20130305
  Transmission Date: 20140127
  Serious: Yes (Other)
  Sender: FDA-Public Use
  Company Number: US-BAYER-201032325NA

PATIENT
  Age: 23 Year
  Sex: Female
  Weight: 113.38 kg

DRUGS (12)
  1. YAZ [Suspect]
     Indication: ACNE
     Dosage: UNK
     Dates: start: 2004, end: 2007
  2. YAZ [Suspect]
     Indication: MENSTRUATION IRREGULAR
  3. YAZ [Suspect]
     Indication: POLYCYSTIC OVARIES
  4. YASMIN [Suspect]
     Indication: ACNE
     Dosage: UNK
     Dates: start: 2004, end: 2007
  5. YASMIN [Suspect]
     Indication: MENSTRUATION IRREGULAR
  6. YASMIN [Suspect]
     Indication: POLYCYSTIC OVARIES
  7. OCELLA [Suspect]
  8. IBUPROFEN [IBUPROFEN] [Concomitant]
     Dosage: UNK
     Dates: start: 20070827
  9. ALBUTEROL [Concomitant]
     Dosage: UNK UNK, PRN
  10. MEDROXYPROGESTERONE ACETATE [Concomitant]
     Dosage: DAILY DOSE 5 MG
     Route: 048
     Dates: start: 20060512
  11. MEDROXYPROGESTERONE ACETATE [Concomitant]
     Dosage: DAILY DOSE 10 MG
     Route: 048
     Dates: start: 20070102
  12. STRATTERA [Concomitant]
     Dosage: DAILY DOSE 60 MG
     Dates: start: 20040226

REACTIONS (12)
  - Pulmonary embolism [None]
  - Myocardial infarction [None]
  - Cerebral haemorrhage [None]
  - Cerebral thrombosis [None]
  - Hypertension [None]
  - Gallbladder disorder [None]
  - Hepatic adenoma [None]
  - Benign hepatic neoplasm [None]
  - Thrombophlebitis [None]
  - Embolism arterial [None]
  - Deep vein thrombosis [Recovered/Resolved]
  - Depression [None]
